FAERS Safety Report 4541900-1 (Version None)
Quarter: 2004Q4

REPORT INFORMATION
  Report Type: 
  Country: None (occurrence: None)
  Receive Date: 20041230
  Receipt Date: 20041117
  Transmission Date: 20050328
  Serious: Yes (Hospitalization)
  Sender: FDA-Public Use
  Company Number: PHBS2004JP15498

PATIENT
  Age: 70 Year
  Sex: Female

DRUGS (5)
  1. LOXONIN [Suspect]
     Indication: TRIGEMINAL NEURALGIA
     Dosage: 60 MG, TID
     Route: 048
     Dates: start: 20010701, end: 20010701
  2. LOXONIN [Suspect]
     Dosage: 180 MG/DAY
     Route: 048
     Dates: start: 20010817, end: 20010817
  3. TEGRETOL [Suspect]
     Indication: TRIGEMINAL NEURALGIA
     Dosage: 200 MG, BID
     Route: 048
     Dates: start: 20010701, end: 20010701
  4. TEGRETOL [Suspect]
     Dosage: 400 MG/DAY
     Route: 048
     Dates: start: 20010817, end: 20010817
  5. TEGRETOL [Suspect]
     Dosage: 400 MG/DAY
     Route: 048
     Dates: start: 20010825, end: 20010825

REACTIONS (5)
  - PAIN [None]
  - PYREXIA [None]
  - RASH [None]
  - SHOCK [None]
  - TOXIC SKIN ERUPTION [None]
